FAERS Safety Report 5980491-5 (Version None)
Quarter: 2008Q4

REPORT INFORMATION
  Report Type: 
  Country: None (occurrence: None)
  Receive Date: 20081202
  Receipt Date: 20081202
  Transmission Date: 20090506
  Serious: Yes (Life-Threatening)
  Sender: FDA-Public Use
  Company Number: None

PATIENT
  Age: 42 Year
  Sex: Female
  Weight: 68.0396 kg

DRUGS (2)
  1. METOPROLOL TARTRATE [Suspect]
     Indication: HEART RATE INCREASED
     Dosage: 1 TWICE A DAY
     Dates: start: 20081103, end: 20081110
  2. METOPROLOL TARTRATE [Suspect]
     Indication: VENTRICULAR EXTRASYSTOLES
     Dosage: 1 TWICE A DAY
     Dates: start: 20081103, end: 20081110

REACTIONS (3)
  - THERAPEUTIC RESPONSE UNEXPECTED WITH DRUG SUBSTITUTION [None]
  - TREMOR [None]
  - VENTRICULAR EXTRASYSTOLES [None]
